FAERS Safety Report 9590250 (Version 1)
Quarter: 2013Q4

REPORT INFORMATION
  Report Type: Spontaneous
  Country: US (occurrence: US)
  Receive Date: 20131003
  Receipt Date: 20131003
  Transmission Date: 20140711
  Serious: No
  Sender: FDA-Public Use
  Company Number: US-AMGEN-USASP2012076372

PATIENT
  Sex: Female

DRUGS (16)
  1. ENBREL [Suspect]
     Indication: RHEUMATOID ARTHRITIS
     Dosage: 50 MG, WEEKLY
     Route: 058
  2. PLAQUENIL                          /00072602/ [Concomitant]
     Dosage: 200 MG, UNK
  3. LEFLUNOMIDE [Concomitant]
     Dosage: 10 MG, UNK
  4. LEXAPRO [Concomitant]
     Dosage: 5 MG, UNK
  5. VITAMIN D3 [Concomitant]
     Dosage: 1000 UNIT, UNK
  6. LUTEIN                             /01638501/ [Concomitant]
     Dosage: 20 MG, UNK
  7. L-GLUTAMINIC ACID [Concomitant]
     Dosage: 500 MG, UNK
  8. BILBERRY                           /01397601/ [Concomitant]
     Dosage: 100 MG, UNK
  9. MSM [Concomitant]
     Dosage: 1000 MG, UNK
  10. GOTU KOLA                          /01477801/ [Concomitant]
     Dosage: 435 MG, UNK
  11. ALPHA LIPOIC ACID [Concomitant]
     Dosage: 200 MG, UNK
  12. GLUCOSAMINE [Concomitant]
     Dosage: 1000 MG, UNK
  13. GINKGO BILOBA [Concomitant]
     Dosage: 30 MG, UNK
  14. MULTIVITAMINS, PLAIN [Concomitant]
     Dosage: UNK
  15. OMEGA                              /00661201/ [Concomitant]
     Dosage: 1000 MG, UNK
  16. COQ-10 [Concomitant]
     Dosage: 120 MG, UNK

REACTIONS (5)
  - Head injury [Unknown]
  - Back injury [Unknown]
  - Fall [Unknown]
  - Road traffic accident [Unknown]
  - Musculoskeletal discomfort [Unknown]
